FAERS Safety Report 4307554-4 (Version None)
Quarter: 2004Q1

REPORT INFORMATION
  Report Type: 
  Country: None (occurrence: None)
  Receive Date: 20040227
  Receipt Date: 20040227
  Transmission Date: 20041129
  Serious: Yes (Other)
  Sender: FDA-Public Use
  Company Number: None

PATIENT
  Sex: Male
  Weight: 18.5975 kg

DRUGS (2)
  1. RISPERDAL [Suspect]
     Indication: ABNORMAL BEHAVIOUR
     Dosage: 2 MG 3 TIMES ORAL
     Route: 048
  2. RISPERDAL [Suspect]
     Indication: PSYCHOMOTOR HYPERACTIVITY
     Dosage: 2 MG 3 TIMES ORAL
     Route: 048

REACTIONS (2)
  - DYSKINESIA [None]
  - MUSCLE SPASMS [None]
